FAERS Safety Report 12652497 (Version 1)
Quarter: 2016Q3

REPORT INFORMATION
  Report Type: Spontaneous
  Country: US (occurrence: US)
  Receive Date: 20160815
  Receipt Date: 20160815
  Transmission Date: 20161109
  Serious: No
  Sender: FDA-Public Use
  Company Number: US-PFIZER INC-2016382084

PATIENT
  Age: 78 Year
  Sex: Male
  Weight: 72.57 kg

DRUGS (1)
  1. SILDENAFIL CITRATE. [Suspect]
     Active Substance: SILDENAFIL CITRATE
     Indication: SEXUAL DYSFUNCTION
     Dosage: 100 MG, AS NEEDED
     Dates: start: 2012

REACTIONS (3)
  - Product substitution issue [Unknown]
  - Drug effect incomplete [Unknown]
  - Intentional product use issue [Unknown]
